FAERS Safety Report 10370421 (Version 3)
Quarter: 2014Q3

REPORT INFORMATION
  Report Type: Report from Study
  Country: JP (occurrence: JP)
  Receive Date: 20140808
  Receipt Date: 20140826
  Transmission Date: 20150326
  Serious: Yes (Hospitalization, Other)
  Sender: FDA-Public Use
  Company Number: JP-MERCK-1408JPN002317

PATIENT
  Age: 75 Year
  Sex: Male
  Weight: 57.7 kg

DRUGS (13)
  1. TABALUMAB [Suspect]
     Active Substance: TABALUMAB
     Indication: PLASMA CELL MYELOMA
     Dosage: 300 MG, CYCLICAL
     Route: 042
     Dates: start: 20140310, end: 20140528
  2. TAKEPRON [Concomitant]
     Active Substance: LANSOPRAZOLE
     Dosage: UNK
     Dates: start: 20100909
  3. AMLODIPINE [Concomitant]
     Active Substance: AMLODIPINE BESYLATE
     Dosage: UNK
     Dates: start: 2011
  4. ACYCLOVIR. [Concomitant]
     Active Substance: ACYCLOVIR
     Dosage: UNK
     Dates: start: 20140306
  5. ALLELOCK [Concomitant]
     Active Substance: OLOPATADINE HYDROCHLORIDE
     Dosage: UNK
     Dates: start: 20140428
  6. BORTEZOMIB [Suspect]
     Active Substance: BORTEZOMIB
     Indication: PLASMA CELL MYELOMA
     Dosage: DAILY DOSAGE: 1.3 MG/M2, CYCLICAL
     Route: 065
     Dates: start: 20140510, end: 20140528
  7. DEXAMETHASONE. [Suspect]
     Active Substance: DEXAMETHASONE
     Indication: PLASMA CELL MYELOMA
     Dosage: 20 MG,(DAYS1,2,4,5,8,9,11,12 OF 21 DAYS CYCLE 1-8 AND DAYS 1,2,8,9,15,16,22,23 OF 35 DAYS)
     Route: 042
     Dates: start: 20140310, end: 20140605
  8. PANTETHINE [Concomitant]
     Active Substance: PANTETHINE
     Dosage: UNK
     Dates: start: 20140403
  9. LYRICA [Concomitant]
     Active Substance: PREGABALIN
     Dosage: UNK
     Dates: start: 20140723
  10. NOVOLIN R [Concomitant]
     Active Substance: INSULIN HUMAN
     Dosage: UNK
     Dates: start: 20140310
  11. FEBUXOSTAT. [Concomitant]
     Active Substance: FEBUXOSTAT
     Dosage: UNK
     Dates: start: 20120222
  12. GLUCOBAY [Concomitant]
     Active Substance: ACARBOSE
     Dosage: UNK
     Dates: start: 20101117
  13. LINAGLIPTIN [Concomitant]
     Active Substance: LINAGLIPTIN
     Dosage: UNK
     Dates: start: 20130411

REACTIONS (5)
  - Diarrhoea [Unknown]
  - Hypoglobulinaemia [Unknown]
  - Colon cancer [Not Recovered/Not Resolved]
  - Hypoaesthesia [Unknown]
  - Faeces discoloured [Recovered/Resolved]

NARRATIVE: CASE EVENT DATE: 20140421
